FAERS Safety Report 20300135 (Version 2)
Quarter: 2022Q1

REPORT INFORMATION
  Report Type: Spontaneous
  Country: US (occurrence: US)
  Receive Date: 20220105
  Receipt Date: 20220107
  Transmission Date: 20220423
  Serious: Yes (Other)
  Sender: FDA-Public Use
  Company Number: US-TEVA-2021-US-1994670

PATIENT
  Age: 71 Year
  Sex: Female

DRUGS (14)
  1. NUVIGIL [Suspect]
     Active Substance: ARMODAFINIL
     Indication: Progressive multiple sclerosis
     Dosage: DOSE: 50MG
     Route: 048
     Dates: end: 2018
  2. TOPROL XL [Concomitant]
     Active Substance: METOPROLOL SUCCINATE
     Indication: Angiopathy
     Dosage: DOSE: 37.5 MG DAILY
     Route: 065
  3. GLIPIZIDE [Concomitant]
     Active Substance: GLIPIZIDE
     Route: 065
  4. PLAVIX [Concomitant]
     Active Substance: CLOPIDOGREL BISULFATE
     Indication: Angiopathy
     Route: 065
  5. ASPIRIN [Concomitant]
     Active Substance: ASPIRIN
     Indication: Angiopathy
     Dosage: DAILY
     Route: 065
  6. UBIQUINOL [Concomitant]
     Active Substance: UBIQUINOL
     Dosage: DAILY
     Route: 065
  7. VASCEPA [Concomitant]
     Active Substance: ICOSAPENT ETHYL
     Indication: Angiopathy
     Dosage: 1 GRAM DAILY;
     Route: 065
  8. ATORVASTATIN [Concomitant]
     Active Substance: ATORVASTATIN
     Indication: Angiopathy
     Route: 065
  9. PAROXETINE [Concomitant]
     Active Substance: PAROXETINE
     Route: 065
  10. TIZANIDINE [Concomitant]
     Active Substance: TIZANIDINE
     Route: 065
  11. BACLOFEN [Concomitant]
     Active Substance: BACLOFEN
     Route: 065
  12. VITAMIN D3 [Concomitant]
     Active Substance: CHOLECALCIFEROL
     Dosage: 7000 IU, EVERY OTHER DAY
     Route: 065
  13. VITAMIN C [Concomitant]
     Active Substance: ASCORBIC ACID
     Dosage: OCCASIONALLY
     Route: 065
  14. Co-Q [Concomitant]
     Indication: Angiopathy

REACTIONS (10)
  - Myocardial infarction [Unknown]
  - Sudden onset of sleep [Unknown]
  - Hypersomnia [Unknown]
  - Wheelchair user [Unknown]
  - Reading disorder [Unknown]
  - Personality disorder [Unknown]
  - Adverse event [Unknown]
  - Somnolence [Unknown]
  - Feeding disorder [Unknown]
  - Product use in unapproved indication [Unknown]
